FAERS Safety Report 15797943 (Version 1)
Quarter: 2019Q1

REPORT INFORMATION
  Report Type: Spontaneous
  Country: US (occurrence: US)
  Receive Date: 20190103
  Receipt Date: 20190103
  Transmission Date: 20190417
  Serious: No
  Sender: FDA-Public Use
  Company Number: None

PATIENT

DRUGS (2)
  1. DOBUTAMINE HCL [Suspect]
     Active Substance: DOBUTAMINE HYDROCHLORIDE
     Dosage: INJECTABLE INJECTION 1,000 MF PER 250ML  IV BAG
     Route: 042
  2. DOBUTAMINE HCL [Suspect]
     Active Substance: DOBUTAMINE HYDROCHLORIDE
     Dosage: ?          OTHER ROUTE:INJECTION?250MG PER 250 ML IV BAG
     Route: 042

REACTIONS (2)
  - Intercepted product selection error [None]
  - Intercepted product dispensing error [None]
